FAERS Safety Report 10453208 (Version 1)
Quarter: 2014Q3

REPORT INFORMATION
  Report Type: Spontaneous
  Country: US (occurrence: US)
  Receive Date: 20140915
  Receipt Date: 20140915
  Transmission Date: 20150326
  Serious: No
  Sender: FDA-Public Use
  Company Number: US-ABBVIE-14P-163-1235844-00

PATIENT
  Sex: Male
  Weight: 40.41 kg

DRUGS (5)
  1. DEPAKOTE [Suspect]
     Active Substance: DIVALPROEX SODIUM
     Indication: OPPOSITIONAL DEFIANT DISORDER
     Route: 048
     Dates: start: 2013
  2. INTUNIV [Concomitant]
     Active Substance: GUANFACINE HYDROCHLORIDE
     Indication: ATTENTION DEFICIT/HYPERACTIVITY DISORDER
  3. DEPAKOTE [Suspect]
     Active Substance: DIVALPROEX SODIUM
     Indication: ATTENTION DEFICIT/HYPERACTIVITY DISORDER
  4. DEPAKOTE [Suspect]
     Active Substance: DIVALPROEX SODIUM
     Indication: AFFECTIVE DISORDER
  5. HYDROXINE [Concomitant]
     Indication: ANXIETY

REACTIONS (13)
  - Insomnia [Not Recovered/Not Resolved]
  - Depression [Not Recovered/Not Resolved]
  - Weight increased [Not Recovered/Not Resolved]
  - Anger [Not Recovered/Not Resolved]
  - Abnormal behaviour [Not Recovered/Not Resolved]
  - Aggression [Not Recovered/Not Resolved]
  - Crying [Not Recovered/Not Resolved]
  - Anxiety [Not Recovered/Not Resolved]
  - Irritability [Not Recovered/Not Resolved]
  - Fatigue [Not Recovered/Not Resolved]
  - Mood altered [Not Recovered/Not Resolved]
  - Restlessness [Not Recovered/Not Resolved]
  - Increased appetite [Not Recovered/Not Resolved]

NARRATIVE: CASE EVENT DATE: 2013
